FAERS Safety Report 20332845 (Version 2)
Quarter: 2022Q1

REPORT INFORMATION
  Report Type: Spontaneous
  Country: US (occurrence: US)
  Receive Date: 20220113
  Receipt Date: 20220124
  Transmission Date: 20220423
  Serious: No
  Sender: FDA-Public Use
  Company Number: US-TEVA-2022-US-1997792

PATIENT
  Age: 68 Year
  Sex: Female

DRUGS (1)
  1. AIRDUO DIGIHALER [Suspect]
     Active Substance: FLUTICASONE PROPIONATE\SALMETEROL XINAFOATE
     Indication: Product used for unknown indication
     Dosage: 113-14 MCG/DOSE-MCG/DOSE, 1 PUFF TWICE DAILY
     Route: 065
     Dates: start: 20220105

REACTIONS (6)
  - Product prescribing error [Unknown]
  - Chest pain [Unknown]
  - Drug hypersensitivity [Unknown]
  - Wrong technique in device usage process [Unknown]
  - Contraindicated product prescribed [Unknown]
  - Device use issue [Unknown]

NARRATIVE: CASE EVENT DATE: 20220101
